FAERS Safety Report 7039519-6 (Version None)
Quarter: 2010Q3

REPORT INFORMATION
  Report Type: 
  Country: None (occurrence: None)
  Receive Date: 20100929
  Receipt Date: 20100611
  Transmission Date: 20110219
  Serious: No
  Sender: FDA-Public Use
  Company Number: US-WYE-H15649910

PATIENT
  Age: 55 Year
  Sex: Female
  Weight: 52.21 kg

DRUGS (8)
  1. PRISTIQ [Suspect]
     Indication: DEPRESSION
     Dosage: 50 MG 1X PER 1 DAY, ORAL
     Route: 048
     Dates: start: 20100301
  2. PROTONIX [Concomitant]
  3. SYNTHROID [Concomitant]
  4. ACCUPRIL [Concomitant]
  5. AMBIEN [Concomitant]
  6. XANAX [Concomitant]
  7. ZETIA [Concomitant]
  8. MULTI-VITAMINS [Concomitant]

REACTIONS (2)
  - ANXIETY [None]
  - VISION BLURRED [None]
